FAERS Safety Report 7118689-5 (Version None)
Quarter: 2010Q4

REPORT INFORMATION
  Report Type: 
  Country: None (occurrence: None)
  Receive Date: 20101027
  Receipt Date: 20091007
  Transmission Date: 20110411
  Serious: Yes (Other)
  Sender: FDA-Public Use
  Company Number: US-WYE-H11525909

PATIENT
  Age: 80 Year
  Sex: Female
  Weight: 63.56 kg

DRUGS (3)
  1. PREMARIN [Suspect]
     Indication: GENITAL DISCOMFORT
     Dosage: TOPICAL
     Route: 061
     Dates: start: 20090925
  2. PROTONIX [Concomitant]
  3. SYNTHROID [Concomitant]

REACTIONS (1)
  - DYSURIA [None]
